FAERS Safety Report 19736925 (Version 3)
Quarter: 2022Q1

REPORT INFORMATION
  Report Type: Spontaneous
  Country: JP (occurrence: JP)
  Receive Date: 20210823
  Receipt Date: 20220216
  Transmission Date: 20220424
  Serious: Yes (Other)
  Sender: FDA-Public Use
  Company Number: JP-DSJP-DSJ-2021-120334

PATIENT
  Age: 68 Year
  Sex: Female

DRUGS (1)
  1. ENHERTU [Suspect]
     Active Substance: FAM-TRASTUZUMAB DERUXTECAN-NXKI
     Indication: HER2 positive breast cancer
     Dosage: 5.4 MG/KG, ONCE EVERY 3 WK
     Route: 041
     Dates: start: 20201014

REACTIONS (4)
  - Cerebral haemorrhage [Unknown]
  - Nausea [Unknown]
  - Disease progression [Not Recovered/Not Resolved]
  - Tumour haemorrhage [Not Recovered/Not Resolved]
